FAERS Safety Report 7094228-2 (Version None)
Quarter: 2010Q4

REPORT INFORMATION
  Report Type: 
  Country: None (occurrence: None)
  Receive Date: 20101110
  Receipt Date: 20101102
  Transmission Date: 20110411
  Serious: Yes (Other)
  Sender: FDA-Public Use
  Company Number: US-SANOFI-AVENTIS-2010SA067441

PATIENT

DRUGS (1)
  1. PLAVIX [Suspect]
     Route: 048
     Dates: start: 19900101

REACTIONS (2)
  - ARTHRALGIA [None]
  - HAEMORRHAGE [None]
